FAERS Safety Report 18201134 (Version 8)
Quarter: 2020Q4

REPORT INFORMATION
  Report Type: Report from Study
  Country: None (occurrence: IL)
  Receive Date: 20200826
  Receipt Date: 20201127
  Transmission Date: 20210113
  Serious: Yes (Hospitalization, Other)
  Sender: FDA-Public Use
  Company Number: IL-ABBVIE-19S-082-2658114-00

PATIENT
  Age: 66 Year
  Sex: Male

DRUGS (9)
  1. DUODOPA [Suspect]
     Active Substance: CARBIDOPA\LEVODOPA
     Dosage: CURRENT: CONTINUOUS DOSE 2.8 ML/HOUR EXTRA DOSAGE 1.5 (ML)
     Route: 050
     Dates: start: 2020
  2. DUODOPA [Suspect]
     Active Substance: CARBIDOPA\LEVODOPA
     Dosage: MD- 15ML, CFR- 4 ML/ HOUR, ED- 2 ML;
     Route: 050
     Dates: start: 2019
  3. DUODOPA [Suspect]
     Active Substance: CARBIDOPA\LEVODOPA
     Dosage: CURRENT: MORNING DOSE 11ML, CONTINUOUS DOSE 3ML/HOUR, EXTRA DOSE 11.5ML
     Route: 050
     Dates: start: 20201102, end: 2020
  4. BACTROBAN [Concomitant]
     Active Substance: MUPIROCIN\MUPIROCIN CALCIUM
     Indication: PRODUCT USED FOR UNKNOWN INDICATION
  5. DUODOPA [Suspect]
     Active Substance: CARBIDOPA\LEVODOPA
     Dosage: CURRENT: MORNING DOSE 11ML, CONTINUOUS DOSE 3.2ML/HOUR, EXTRA DOSE 11.5ML
     Route: 050
     Dates: end: 20201102
  6. DUODOPA [Suspect]
     Active Substance: CARBIDOPA\LEVODOPA
     Dosage: MORNING DOSE?12 ML,?CONTINUOUS DOSE 3.4 ML/HOUR
     Route: 050
  7. DUODOPA [Suspect]
     Active Substance: CARBIDOPA\LEVODOPA
     Indication: PARKINSON^S DISEASE
     Dosage: MD- 12ML, CFR- 3.1 ML/ HOUR, ED- 1.5 ML
     Route: 050
     Dates: start: 20190122, end: 2019
  8. DUODOPA [Suspect]
     Active Substance: CARBIDOPA\LEVODOPA
     Dosage: CURRENT MD11 ML, CURRENT CD 3.2 ML/HOUR, CURRENT ED 2 ML
     Route: 050
  9. REQUIP [Concomitant]
     Active Substance: ROPINIROLE HYDROCHLORIDE
     Indication: PRODUCT USED FOR UNKNOWN INDICATION

REACTIONS (19)
  - Meningioma [Unknown]
  - Pseudomonas infection [Unknown]
  - Medical device site dryness [Unknown]
  - Stoma site odour [Unknown]
  - Constipation [Unknown]
  - Bradykinesia [Unknown]
  - Stoma site haemorrhage [Unknown]
  - Computerised tomogram head abnormal [Unknown]
  - Abdominal distension [Unknown]
  - Dyskinesia [Unknown]
  - Stoma site pain [Unknown]
  - Stoma site erythema [Unknown]
  - Intracranial mass [Unknown]
  - Stoma site discharge [Unknown]
  - Excessive granulation tissue [Unknown]
  - Stoma site induration [Unknown]
  - Asthenia [Unknown]
  - Dyskinesia [Recovered/Resolved]
  - Dizziness [Not Recovered/Not Resolved]

NARRATIVE: CASE EVENT DATE: 2019
